FAERS Safety Report 8531237-8 (Version None)
Quarter: 2012Q3

REPORT INFORMATION
  Report Type: 
  Country: None (occurrence: None)
  Receive Date: 20120723
  Receipt Date: 20120723
  Transmission Date: 20120928
  Serious: Yes (Other)
  Sender: FDA-Public Use
  Company Number: IE-PFIZER INC-2012159989

PATIENT
  Age: 27 Year
  Sex: Male

DRUGS (2)
  1. SODIUM CHLORIDE [Suspect]
     Dosage: 100 ML
     Dates: start: 20120624
  2. PIPERACILLIN AND TAZOBACTAM [Suspect]
     Dosage: 4500 MG, SINGLE
     Dates: start: 20120624

REACTIONS (2)
  - PAIN [None]
  - ABASIA [None]
